FAERS Safety Report 10673542 (Version 1)
Quarter: 2014Q4

REPORT INFORMATION
  Report Type: Spontaneous
  Country: CN (occurrence: CN)
  Receive Date: 20141224
  Receipt Date: 20141224
  Transmission Date: 20150529
  Serious: Yes (Death)
  Sender: FDA-Public Use
  Company Number: CN-CIPLA LTD.-2014CN02666

PATIENT

DRUGS (2)
  1. GEMCITABINE [Suspect]
     Active Substance: GEMCITABINE\GEMCITABINE HYDROCHLORIDE
     Indication: BREAST CANCER METASTATIC
     Dosage: 1250 MG/M2 OVER 30-60 MIN I.V. ON THE FIRST AND EIGHTH DAYS OF EACH CYCLE
     Route: 042
  2. PACLITAXEL. [Suspect]
     Active Substance: PACLITAXEL
     Indication: BREAST CANCER METASTATIC
     Dosage: 175 MG/M2 OVER 3 HOURS ON THE FIRST DAY OF A 21-DAY CYCLE
     Route: 042

REACTIONS (1)
  - Asthenia [Fatal]
